FAERS Safety Report 9179401 (Version 1)
Quarter: 2012Q4

REPORT INFORMATION
  Report Type: 
  Country: US (occurrence: US)
  Receive Date: 20121029
  Receipt Date: 20121029
  Transmission Date: 20130627
  Serious: No
  Sender: FDA-Public Use
  Company Number: US-AMGEN-USASP2012052451

PATIENT
  Age: 53 Year
  Sex: Male
  Weight: 124.72 kg

DRUGS (5)
  1. ENBREL [Suspect]
     Indication: PRODUCT USED FOR UNKNOWN INDICATION
     Dosage: 50 mg, qwk
     Route: 058
  2. MOTRIN [Concomitant]
     Dosage: 400 mg, UNK
  3. LISINOPRIL [Concomitant]
     Dosage: 40 mg, UNK
  4. IBUPROFEN [Concomitant]
     Dosage: 200 mg, UNK
  5. GINKOBA [Concomitant]
     Dosage: 40 mg, UNK

REACTIONS (1)
  - Infected cyst [Recovered/Resolved]
